FAERS Safety Report 9559939 (Version 3)
Quarter: 2014Q2

REPORT INFORMATION
  Report Type: Spontaneous
  Country: JP (occurrence: None)
  Receive Date: 20130925
  Receipt Date: 20140609
  Transmission Date: 20141212
  Serious: Yes (Death, Other)
  Sender: FDA-Public Use
  Company Number: ABR_01019_2013

PATIENT
  Age: 44 Year
  Sex: Female
  Weight: 41 kg

DRUGS (2)
  1. GLIADEL [Suspect]
     Indication: MALIGNANT GLIOMA
     Dosage: 7 DOSAGE FORMS INTRACEREBRAL
     Dates: start: 20130401
  2. TEMODAL [Concomitant]

REACTIONS (5)
  - Brain oedema [None]
  - Apathy [None]
  - Decreased appetite [None]
  - Disturbance in attention [None]
  - Aphasia [None]
